FAERS Safety Report 19274318 (Version 1)
Quarter: 2021Q2

REPORT INFORMATION
  Report Type: Spontaneous
  Country: US (occurrence: US)
  Receive Date: 20210519
  Receipt Date: 20210519
  Transmission Date: 20210717
  Serious: Yes (Other)
  Sender: FDA-Public Use
  Company Number: US-BAYER-2021-141025

PATIENT
  Sex: Female

DRUGS (2)
  1. ASPIRIN (PAIN AND FEVER) [Suspect]
     Active Substance: ASPIRIN
     Indication: PRODUCT USE IN UNAPPROVED INDICATION
     Dosage: UNK
  2. MILK OF MAGNESIA ORIGINAL [Suspect]
     Active Substance: MAGNESIUM HYDROXIDE
     Indication: EPILEPSY
     Dosage: UNK

REACTIONS (11)
  - Hormone level abnormal [Unknown]
  - Paralysis [Recovered/Resolved]
  - Seizure [Unknown]
  - Drug effective for unapproved indication [Unknown]
  - Epilepsy [Unknown]
  - Migraine [Unknown]
  - Constipation [None]
  - Chest pain [Unknown]
  - Abdominal distension [Unknown]
  - Hirsutism [Unknown]
  - Alopecia [Unknown]
